FAERS Safety Report 6377790-4 (Version None)
Quarter: 2009Q3

REPORT INFORMATION
  Report Type: 
  Country: None (occurrence: None)
  Receive Date: 20090925
  Receipt Date: 20090918
  Transmission Date: 20100115
  Serious: Yes (Other)
  Sender: FDA-Public Use
  Company Number: US-NOVOPROD-291852

PATIENT
  Age: 63 Year
  Sex: Female
  Weight: 68.934 kg

DRUGS (3)
  1. NOVOLOG [Suspect]
     Indication: TYPE 1 DIABETES MELLITUS
     Dosage: 12 UNITS BEFORE MEALS
     Route: 058
     Dates: start: 20080301
  2. LEVEMIR [Suspect]
     Indication: TYPE 1 DIABETES MELLITUS
     Dosage: 55 IU, QD IN THE MORNING
     Route: 058
     Dates: start: 20080301
  3. LEVEMIR [Suspect]
     Dosage: 55 IU, QD AT NIGHT
     Route: 058

REACTIONS (1)
  - ASCITES [None]
